FAERS Safety Report 7979066-8 (Version None)
Quarter: 2011Q4

REPORT INFORMATION
  Report Type: 
  Country: None (occurrence: None)
  Receive Date: 20111205
  Receipt Date: 20111122
  Transmission Date: 20120403
  Serious: Yes (Hospitalization, Other)
  Sender: FDA-Public Use
  Company Number: 2011MA016753

PATIENT
  Age: 58 Year
  Sex: Female
  Weight: 97.977 kg

DRUGS (24)
  1. VITAMIN D [Concomitant]
  2. DIOVAN [Concomitant]
  3. VITAMIN C [Concomitant]
  4. DILAUDID [Concomitant]
  5. DICYCLOMINE [Concomitant]
  6. NAPROSYN [Concomitant]
  7. SIMVASTATIN [Concomitant]
  8. MOTRIN [Concomitant]
  9. ACTOS [Concomitant]
  10. GLYBURIDE [Concomitant]
  11. TRAMADOL HCL [Concomitant]
  12. LASIX [Concomitant]
  13. MEDROL [Concomitant]
  14. PEPCID [Concomitant]
  15. VICODIN [Concomitant]
  16. ZOMETA [Concomitant]
  17. NITROGLYCERIN [Concomitant]
  18. DIGOXIN [Suspect]
     Indication: CARDIAC FAILURE CONGESTIVE
     Dosage: 0.25 MG;QD;PO
     Route: 048
     Dates: start: 20070109, end: 20080411
  19. METFORMIN HCL [Concomitant]
  20. PRAVASTATIN [Concomitant]
  21. KLOR-CON [Concomitant]
  22. INDOCIN [Concomitant]
  23. VITAMIN E [Concomitant]
  24. TORADOL [Concomitant]

REACTIONS (27)
  - CARDIAC DISORDER [None]
  - ECONOMIC PROBLEM [None]
  - MEMORY IMPAIRMENT [None]
  - CARDIOVASCULAR DISORDER [None]
  - HYPERTHYROIDISM [None]
  - BACK PAIN [None]
  - GLYCOSYLATED HAEMOGLOBIN INCREASED [None]
  - GOUTY ARTHRITIS [None]
  - PARATHYROID TUMOUR BENIGN [None]
  - ANXIETY [None]
  - HYPERCALCAEMIA [None]
  - ATRIAL FIBRILLATION [None]
  - GAIT DISTURBANCE [None]
  - ATRIOVENTRICULAR BLOCK FIRST DEGREE [None]
  - UNEVALUABLE EVENT [None]
  - DIABETES MELLITUS [None]
  - MULTIPLE INJURIES [None]
  - HYPERTENSION [None]
  - HYPERCHOLESTEROLAEMIA [None]
  - HYPOAESTHESIA [None]
  - SCIATICA [None]
  - PAIN [None]
  - MYOCARDIAL INFARCTION [None]
  - CORONARY ARTERY DISEASE [None]
  - PAIN IN EXTREMITY [None]
  - FLUID RETENTION [None]
  - REFUSAL OF TREATMENT BY PATIENT [None]
